FAERS Safety Report 15976396 (Version 2)
Quarter: 2019Q4

REPORT INFORMATION
  Report Type: Report from Study
  Country: ES (occurrence: ES)
  Receive Date: 20190218
  Receipt Date: 20191104
  Transmission Date: 20200122
  Serious: Yes (Hospitalization)
  Sender: FDA-Public Use
  Company Number: ES-BIOVITRUM-2016ES0170

PATIENT
  Age: 8 Year
  Sex: Female
  Weight: 27 kg

DRUGS (2)
  1. ORFADIN [Suspect]
     Active Substance: NITISINONE
     Indication: TYROSINAEMIA
     Dosage: 0.87-0.55 MG/KG
     Route: 065
     Dates: start: 20131003, end: 20150323
  2. ORFADIN [Suspect]
     Active Substance: NITISINONE
     Dosage: 0.85 MG/KG
     Route: 065
     Dates: start: 20150323

REACTIONS (4)
  - Hepatic lesion [Not Recovered/Not Resolved]
  - Alpha 1 foetoprotein increased [Not Recovered/Not Resolved]
  - Amino acid level decreased [Unknown]
  - Amino acid level increased [Recovered/Resolved]

NARRATIVE: CASE EVENT DATE: 20180911
